FAERS Safety Report 8484478-2 (Version None)
Quarter: 2012Q3

REPORT INFORMATION
  Report Type: 
  Country: None (occurrence: None)
  Receive Date: 20120703
  Receipt Date: 20120629
  Transmission Date: 20120928
  Serious: Yes (Other)
  Sender: FDA-Public Use
  Company Number: PHHY2011RO19415

PATIENT
  Sex: Female

DRUGS (4)
  1. CARBIDOPA,ENTACAPONE,LEVODOPA [Suspect]
     Indication: PARKINSON'S DISEASE
     Dosage: 200(LEVODOPA)/50(CARBIDOPA)/200(ENTACAPONE) 4 DF(TABLETS) PER DAY
     Dates: start: 20100520
  2. MADOPAR [Concomitant]
     Dosage: 2 DF/ DAY
  3. AZILECT [Concomitant]
     Dosage: 1 MG/ DAY
  4. REQUIP [Concomitant]
     Dosage: 8 MG / DAY

REACTIONS (3)
  - PANIC ATTACK [None]
  - INSOMNIA [None]
  - ANXIETY [None]
